FAERS Safety Report 25056907 (Version 1)
Quarter: 2025Q1

REPORT INFORMATION
  Report Type: Report from Study
  Country: US (occurrence: US)
  Receive Date: 20250310
  Receipt Date: 20250310
  Transmission Date: 20250409
  Serious: Yes (Other)
  Sender: ACADIA PHARMACEUTICALS
  Company Number: US-ACADIA PHARMACEUTICALS INC.-ACA-2025-PIM-002443

PATIENT
  Sex: Female

DRUGS (8)
  1. NUPLAZID [Suspect]
     Active Substance: PIMAVANSERIN TARTRATE
     Indication: Parkinson^s disease
     Dosage: 34 MILLIGRAM, QD
     Route: 048
  2. RIVASTIGMINE [Concomitant]
     Active Substance: RIVASTIGMINE
  3. XANAX [Concomitant]
     Active Substance: ALPRAZOLAM
  4. TYLENOL [Concomitant]
     Active Substance: ACETAMINOPHEN
  5. ONDANSETRON [Concomitant]
     Active Substance: ONDANSETRON
  6. DULCOLAX (BISACODYL) [Concomitant]
     Active Substance: BISACODYL
  7. SYNTHROID [Concomitant]
     Active Substance: LEVOTHYROXINE SODIUM
  8. CARBIDOPA\LEVODOPA [Concomitant]
     Active Substance: CARBIDOPA\LEVODOPA

REACTIONS (2)
  - Hallucination [Unknown]
  - Dyskinesia [Unknown]
